FAERS Safety Report 5506977-5 (Version None)
Quarter: 2007Q4

REPORT INFORMATION
  Report Type: 
  Country: None (occurrence: None)
  Receive Date: 20071105
  Receipt Date: 20071029
  Transmission Date: 20080405
  Serious: Yes (Hospitalization)
  Sender: FDA-Public Use
  Company Number: US-ROXANE LABORATORIES, INC-2007-UK-03360UK

PATIENT
  Sex: Male

DRUGS (6)
  1. AGGRENOX [Suspect]
     Indication: CEREBROVASCULAR ACCIDENT PROPHYLAXIS
     Dosage: BLINDED STUDY DRUG
     Route: 048
  2. MICARDIS [Suspect]
     Indication: CEREBROVASCULAR ACCIDENT PROPHYLAXIS
     Dosage: BLINDED STUDY DRUG
     Route: 048
  3. CLOPIDOGREL [Suspect]
     Indication: CEREBROVASCULAR ACCIDENT PROPHYLAXIS
     Dosage: BLINDED STUDY DRUG
     Route: 048
  4. PLACEBO (BLIND) [Suspect]
     Indication: CEREBROVASCULAR ACCIDENT PROPHYLAXIS
     Dosage: BLINDED STUDY DRUG
     Route: 048
  5. HYDROCHLOROTHIAZIDE [Suspect]
     Indication: HYPERTENSION
  6. NORVASC [Suspect]
     Indication: HYPERTENSION

REACTIONS (1)
  - CEREBROVASCULAR ACCIDENT [None]
